FAERS Safety Report 8095786-1 (Version None)
Quarter: 2012Q1

REPORT INFORMATION
  Report Type: 
  Country: None (occurrence: None)
  Receive Date: 20120129
  Receipt Date: 20111222
  Transmission Date: 20120608
  Serious: No
  Sender: FDA-Public Use
  Company Number: US-ABBOTT-11P-163-0886701-00

PATIENT
  Age: 49 Year
  Sex: Male

DRUGS (3)
  1. BUDESONIDE [Concomitant]
     Indication: CROHN'S DISEASE
     Route: 048
  2. HUMIRA [Suspect]
     Indication: CROHN'S DISEASE
     Dates: start: 20110801, end: 20111218
  3. SEROQUEL [Concomitant]
     Indication: SLEEP DISORDER
     Route: 048

REACTIONS (5)
  - BLOOD PRESSURE INCREASED [None]
  - JUGULAR VEIN DISTENSION [None]
  - ACNE [None]
  - ERYTHEMA [None]
  - DRUG INEFFECTIVE [None]
